FAERS Safety Report 5098284-2 (Version None)
Quarter: 2006Q3

REPORT INFORMATION
  Report Type: 
  Country: None (occurrence: None)
  Receive Date: 20060906
  Receipt Date: 20060825
  Transmission Date: 20061208
  Serious: Yes (Death)
  Sender: FDA-Public Use
  Company Number: GB-GILEAD-2006-0010144

PATIENT

DRUGS (1)
  1. DAUNOXOME [Suspect]
     Indication: SARCOMA
     Route: 042

REACTIONS (1)
  - DUODENAL ULCER PERFORATION [None]
